FAERS Safety Report 4339178-7 (Version None)
Quarter: 2004Q2

REPORT INFORMATION
  Report Type: 
  Country: None (occurrence: None)
  Receive Date: 20040414
  Receipt Date: 20040414
  Transmission Date: 20050107
  Serious: Yes (Life-Threatening)
  Sender: FDA-Public Use
  Company Number: None

PATIENT
  Age: 25 Year
  Sex: Female
  Weight: 63 kg

DRUGS (2)
  1. ROCEPHIN [Suspect]
     Indication: TOOTHACHE
     Dosage: 1 GRAM  X 1
     Dates: start: 20030205
  2. AUGMENTIN [Suspect]
     Indication: TOOTHACHE
     Dates: start: 20030205

REACTIONS (2)
  - STEVENS-JOHNSON SYNDROME [None]
  - TOXIC EPIDERMAL NECROLYSIS [None]
